FAERS Safety Report 4420376-9 (Version None)
Quarter: 2004Q3

REPORT INFORMATION
  Report Type: 
  Country: None (occurrence: None)
  Receive Date: 20040804
  Receipt Date: 20040722
  Transmission Date: 20050211
  Serious: Yes (Death)
  Sender: FDA-Public Use
  Company Number: BE-JNJFOC-20040707969

PATIENT
  Age: 4 Month
  Sex: Female

DRUGS (1)
  1. CISAPRIDE (CISAPRIDE) SUSPENSION [Suspect]
     Indication: GASTROOESOPHAGEAL REFLUX DISEASE
     Dosage: 0.7 MG, 4 IN 1 DAY
     Dates: start: 20040521

REACTIONS (1)
  - POST PROCEDURAL COMPLICATION [None]
